FAERS Safety Report 7726618-6 (Version None)
Quarter: 2011Q3

REPORT INFORMATION
  Report Type: 
  Country: None (occurrence: None)
  Receive Date: 20110902
  Receipt Date: 20110822
  Transmission Date: 20111222
  Serious: Yes (Hospitalization)
  Sender: FDA-Public Use
  Company Number: US-ELI_LILLY_AND_COMPANY-US201107007899

PATIENT
  Age: 61 Year
  Sex: Female

DRUGS (3)
  1. CYMBALTA [Suspect]
     Indication: DEPRESSION
     Dosage: 30 MG, QD
     Route: 048
     Dates: start: 20110629
  2. DARVOCET [Concomitant]
     Indication: ARTHRITIS
     Dosage: UNK
  3. EFFEXOR [Concomitant]

REACTIONS (2)
  - COLITIS ISCHAEMIC [None]
  - CONFUSIONAL STATE [None]
